FAERS Safety Report 7936517-2 (Version None)
Quarter: 2011Q4

REPORT INFORMATION
  Report Type: 
  Country: None (occurrence: None)
  Receive Date: 20111123
  Receipt Date: 20110901
  Transmission Date: 20120403
  Serious: No
  Sender: FDA-Public Use
  Company Number: US-BAYER-2011-087767

PATIENT

DRUGS (3)
  1. ALLERGY MEDICATION [Concomitant]
     Dosage: 2 DF, ONCE
     Dates: start: 20110901
  2. EXCEDRIN [ACETYLSALICYLIC ACID,CAFFEINE,PARACETAMOL] [Concomitant]
     Dosage: 5 DF, ONCE
     Dates: start: 20110901
  3. ALEVE (CAPLET) [Suspect]
     Dosage: 4 DF, ONCE
     Route: 048
     Dates: start: 20110901

REACTIONS (1)
  - NO ADVERSE EVENT [None]
